FAERS Safety Report 7617973-6 (Version None)
Quarter: 2011Q3

REPORT INFORMATION
  Report Type: 
  Country: None (occurrence: None)
  Receive Date: 20110718
  Receipt Date: 20110706
  Transmission Date: 20111222
  Serious: Yes (Other)
  Sender: FDA-Public Use
  Company Number: PHHY2010DE58141

PATIENT
  Age: 63 Year
  Sex: Female
  Weight: 72 kg

DRUGS (4)
  1. FEMARA [Suspect]
     Indication: BREAST CANCER
     Dosage: 2.5 MG, QD
     Route: 048
     Dates: start: 20080701, end: 20100701
  2. ZOMETA [Suspect]
     Dosage: 4 MG
     Route: 042
     Dates: start: 20100701
  3. MISTLETOE [Concomitant]
     Indication: BREAST CANCER
     Dates: start: 20090701
  4. ZOMETA [Suspect]
     Indication: BREAST CANCER
     Dosage: 4 MG
     Route: 042
     Dates: start: 20090201

REACTIONS (2)
  - DRUG INEFFECTIVE [None]
  - PAIN IN EXTREMITY [None]
